FAERS Safety Report 24269084 (Version 1)
Quarter: 2024Q3

REPORT INFORMATION
  Report Type: Spontaneous
  Country: CN (occurrence: CN)
  Receive Date: 20240830
  Receipt Date: 20240830
  Transmission Date: 20241017
  Serious: Yes (Life-Threatening)
  Sender: EAGLE
  Company Number: PA2024CN000172

PATIENT
  Age: 45 Year
  Sex: Female
  Weight: 53.97 kg

DRUGS (4)
  1. REMIMAZOLAM [Suspect]
     Active Substance: REMIMAZOLAM
     Indication: Induction of anaesthesia
     Dosage: 8 MILLIGRAM, UNK
     Route: 042
     Dates: start: 20240814, end: 20240814
  2. CEFUROXIME SODIUM [Suspect]
     Active Substance: CEFUROXIME SODIUM
     Indication: Infection prophylaxis
     Dosage: 1.5 GRAM, UNK
     Route: 042
     Dates: start: 20240814, end: 20240814
  3. PROPOFOL [Suspect]
     Active Substance: PROPOFOL
     Indication: Induction of anaesthesia
     Dosage: 80 MILLIGRAM, UNK
     Route: 042
     Dates: start: 20240814, end: 20240814
  4. ALFENTANIL HYDROCHLORIDE [Suspect]
     Active Substance: ALFENTANIL HYDROCHLORIDE
     Indication: Induction of anaesthesia
     Dosage: 500 MICROGRAM, UNK
     Route: 042
     Dates: start: 20240814, end: 20240814

REACTIONS (2)
  - Brain oedema [Unknown]
  - Anaphylactic shock [Recovered/Resolved]

NARRATIVE: CASE EVENT DATE: 20240814
